FAERS Safety Report 4530550-9 (Version None)
Quarter: 2004Q4

REPORT INFORMATION
  Report Type: 
  Country: None (occurrence: None)
  Receive Date: 20041216
  Receipt Date: 20041216
  Transmission Date: 20050328
  Serious: Yes (Life-Threatening, Hospitalization)
  Sender: FDA-Public Use
  Company Number: None

PATIENT
  Age: 82 Year
  Sex: Female
  Weight: 54.9 kg

DRUGS (11)
  1. KCL 30MEQ BID AND ALTACE R 10MG DAILY [Suspect]
     Dosage: 30 MEQ BID
  2. ALTACE [Suspect]
     Indication: CARDIAC FAILURE CONGESTIVE
     Dosage: 10 MG DAILY
  3. MIACALCIN [Concomitant]
  4. COREG [Concomitant]
  5. FLEXERIL [Concomitant]
  6. DOCUSATE SODIUM [Concomitant]
  7. SYNTHROID [Concomitant]
  8. COUMADIN [Concomitant]
  9. FUROSEMIDE [Concomitant]
  10. CELEBREX [Concomitant]
  11. METAMUCIL-2 [Concomitant]

REACTIONS (5)
  - ARRHYTHMIA [None]
  - ATRIAL FIBRILLATION [None]
  - BLOOD POTASSIUM INCREASED [None]
  - CARDIAC FAILURE CONGESTIVE [None]
  - CONDITION AGGRAVATED [None]
